FAERS Safety Report 5351719-X (Version None)
Quarter: 2007Q2

REPORT INFORMATION
  Report Type: 
  Country: None (occurrence: None)
  Receive Date: 20070521
  Receipt Date: 20070221
  Transmission Date: 20071010
  Serious: No
  Sender: FDA-Public Use
  Company Number: WAES 0702USA03979

PATIENT
  Age: 75 Year
  Sex: Male
  Weight: 98.4306 kg

DRUGS (11)
  1. JANUVIA [Suspect]
     Indication: DIABETES MELLITUS
     Dosage: 25 MG/ DAILY/ PO
     Route: 048
     Dates: start: 20061211, end: 20070124
  2. DIOVAN [Concomitant]
  3. LUNESTA [Concomitant]
  4. NEXIUM [Concomitant]
  5. ZETIA [Concomitant]
  6. ALLOPURINOL [Concomitant]
  7. ASPIRIN [Concomitant]
  8. ATENOLOL [Concomitant]
  9. FUROSEMIDE [Concomitant]
  10. GLIPIZIDE [Concomitant]
  11. POTASSIUM CHLORIDE [Concomitant]

REACTIONS (3)
  - AZOTAEMIA [None]
  - DRUG ADMINISTRATION ERROR [None]
  - PRURITUS [None]
